FAERS Safety Report 4412975-5 (Version None)
Quarter: 2004Q3

REPORT INFORMATION
  Report Type: 
  Country: None (occurrence: None)
  Receive Date: 20040802
  Receipt Date: 20040114
  Transmission Date: 20050211
  Serious: No
  Sender: FDA-Public Use
  Company Number: US-GLAXOSMITHKLINE-A0493259A

PATIENT
  Age: 6 Month
  Sex: Female

DRUGS (4)
  1. ZANTAC [Suspect]
     Dosage: 15MGML THREE TIMES PER DAY
     Route: 048
     Dates: start: 20030101
  2. ZYRTEC [Suspect]
     Indication: ILL-DEFINED DISORDER
     Route: 048
  3. REGLAN [Concomitant]
  4. POLYVISOL [Concomitant]

REACTIONS (5)
  - LETHARGY [None]
  - MEDICATION ERROR [None]
  - PHARMACEUTICAL PRODUCT COMPLAINT [None]
  - SOMNOLENCE [None]
  - VOMITING [None]
